FAERS Safety Report 24639928 (Version 1)
Quarter: 2024Q4

REPORT INFORMATION
  Report Type: Spontaneous
  Country: JP (occurrence: JP)
  Receive Date: 20241120
  Receipt Date: 20241120
  Transmission Date: 20250114
  Serious: Yes (Other)
  Sender: STRIDES
  Company Number: JP-STRIDES ARCOLAB LIMITED-2024SP014917

PATIENT

DRUGS (1)
  1. TACROLIMUS [Suspect]
     Active Substance: TACROLIMUS
     Indication: Product used for unknown indication
     Dosage: UNK, (PATIENT^S MOTHER WAS RECEIVING 3 MILLIGRAM/DAY)
     Route: 064

REACTIONS (13)
  - Patent ductus arteriosus [Unknown]
  - Laryngomalacia [Unknown]
  - Hypogammaglobulinaemia [Unknown]
  - Hypothyroidism [Unknown]
  - Rickets [Unknown]
  - Retinopathy of prematurity [Unknown]
  - Tricuspid valve stenosis [Unknown]
  - Necrotising colitis [Unknown]
  - Low birth weight baby [Unknown]
  - Neutropenia [Unknown]
  - Congenital pneumonia [Unknown]
  - Neonatal respiratory distress syndrome [Unknown]
  - Foetal exposure during pregnancy [Unknown]
